FAERS Safety Report 14710131 (Version 1)
Quarter: 2018Q2

REPORT INFORMATION
  Report Type: Spontaneous
  Country: US (occurrence: US)
  Receive Date: 20180403
  Receipt Date: 20180403
  Transmission Date: 20180711
  Serious: Yes (Hospitalization)
  Sender: FDA-Public Use
  Company Number: US-OTSUKA-2018_007782

PATIENT
  Sex: Female

DRUGS (1)
  1. REXULTI [Suspect]
     Active Substance: BREXPIPRAZOLE
     Indication: ADJUVANT THERAPY
     Dosage: 0.25 MG, UNK
     Route: 065
     Dates: start: 201711, end: 201711

REACTIONS (3)
  - Prescribed underdose [Unknown]
  - Panic attack [Unknown]
  - Therapy cessation [Unknown]

NARRATIVE: CASE EVENT DATE: 201711
